FAERS Safety Report 25239035 (Version 4)
Quarter: 2025Q4

REPORT INFORMATION
  Report Type: Spontaneous
  Country: JP (occurrence: JP)
  Receive Date: 20250425
  Receipt Date: 20251027
  Transmission Date: 20260118
  Serious: Yes (Death, Hospitalization)
  Sender: MERCK SHARP & DOHME LLC
  Company Number: JP-009507513-2257825

PATIENT
  Age: 40 Year
  Sex: Female

DRUGS (3)
  1. KEYTRUDA [Suspect]
     Active Substance: PEMBROLIZUMAB
     Indication: Uterine cancer
     Dosage: 200 MG, ONCE EVERY 3 WEEKS
     Route: 041
     Dates: start: 20241028, end: 202502
  2. LENVIMA [Suspect]
     Active Substance: LENVATINIB
     Indication: Uterine cancer
     Dosage: 20 MG, ONCE A DAY
     Route: 048
     Dates: start: 20241028, end: 202502
  3. LENVIMA [Suspect]
     Active Substance: LENVATINIB
     Indication: Uterine cancer
     Route: 048
     Dates: start: 2025, end: 2025

REACTIONS (3)
  - Malignant neoplasm progression [Fatal]
  - Drug ineffective [Unknown]
  - Interstitial lung disease [Recovered/Resolved]

NARRATIVE: CASE EVENT DATE: 20250213
